FAERS Safety Report 4382365-2 (Version None)
Quarter: 2004Q2

REPORT INFORMATION
  Report Type: 
  Country: None (occurrence: None)
  Receive Date: 20040621
  Receipt Date: 20040621
  Transmission Date: 20050107
  Serious: Yes (Disabling)
  Sender: FDA-Public Use
  Company Number: None

PATIENT
  Age: 25 Year
  Sex: Male
  Weight: 81.6475 kg

DRUGS (2)
  1. EFFEXOR XR [Suspect]
     Indication: ANXIETY
     Dosage: 150 DAILY ORAL
     Route: 048
     Dates: start: 20020201, end: 20040610
  2. EFFEXOR XR [Suspect]
     Indication: DEPRESSION
     Dosage: 150 DAILY ORAL
     Route: 048
     Dates: start: 20020201, end: 20040610

REACTIONS (2)
  - DRUG WITHDRAWAL SYNDROME [None]
  - NERVOUS SYSTEM DISORDER [None]
